FAERS Safety Report 8793995 (Version 2)
Quarter: 2012Q4

REPORT INFORMATION
  Report Type: 
  Country: US (occurrence: US)
  Receive Date: 20120917
  Receipt Date: 20121003
  Transmission Date: 20130627
  Serious: Yes (Other)
  Sender: FDA-Public Use
  Company Number: US-PFIZER INC-2012227383

PATIENT
  Age: 64 Year
  Sex: Female
  Weight: 56.69 kg

DRUGS (3)
  1. LIPITOR [Suspect]
     Indication: BLOOD CHOLESTEROL INCREASED
     Dosage: 40 mg, 1x/day
     Route: 048
  2. SYNTHROID [Concomitant]
     Indication: THYROID DISORDER
     Dosage: UNK
  3. ACTONEL [Concomitant]
     Indication: BONE DISORDER
     Dosage: UNK

REACTIONS (2)
  - Thyroid disorder [Unknown]
  - Body height decreased [Unknown]
